FAERS Safety Report 12429326 (Version 1)
Quarter: 2016Q2

REPORT INFORMATION
  Report Type: Report from Study
  Country: IN (occurrence: IN)
  Receive Date: 20160602
  Receipt Date: 20160602
  Transmission Date: 20160815
  Serious: Yes (Death)
  Sender: FDA-Public Use
  Company Number: IN-009507513-1605IND014714

PATIENT
  Age: 60 Year
  Sex: Female
  Weight: 62 kg

DRUGS (1)
  1. SITAGLIPTIN PHOSPHATE (+) METFORMIN HYDROCHLORIDE [Suspect]
     Active Substance: METFORMIN HYDROCHLORIDE\SITAGLIPTIN PHOSPHATE
     Indication: DIABETES MELLITUS
     Dosage: STRENGTH: 50/500 (UNIT NOT REPORTED), DOSE: 2/DAY, BID
     Route: 048

REACTIONS (1)
  - Myocardial infarction [Fatal]
